FAERS Safety Report 10086277 (Version 1)
Quarter: 2014Q2

REPORT INFORMATION
  Report Type: Spontaneous
  Country: US (occurrence: US)
  Receive Date: 20140418
  Receipt Date: 20140418
  Transmission Date: 20141212
  Serious: No
  Sender: FDA-Public Use
  Company Number: US-ENDO PHARMACEUTICALS INC.-DIAZ20130011

PATIENT
  Sex: Male
  Weight: 90.8 kg

DRUGS (2)
  1. DIAZEPAM 5MG [Suspect]
     Indication: DIZZINESS
     Dosage: 1.75 TO 2.5 MG
     Route: 060
  2. DIAZEPAM 5MG [Suspect]
     Indication: MENIERE^S DISEASE

REACTIONS (2)
  - Headache [Recovered/Resolved]
  - Drug ineffective for unapproved indication [Recovered/Resolved]
